FAERS Safety Report 4406445-8 (Version None)
Quarter: 2004Q3

REPORT INFORMATION
  Report Type: 
  Country: None (occurrence: None)
  Receive Date: 20040716
  Receipt Date: 20040706
  Transmission Date: 20050211
  Serious: Yes (Hospitalization)
  Sender: FDA-Public Use
  Company Number: 2004AP03456

PATIENT
  Age: 60 Year
  Sex: Male

DRUGS (2)
  1. SEROQUEL [Suspect]
     Indication: DEPRESSION
     Dosage: 150 MG DAILY PO
     Route: 048
     Dates: start: 20040507, end: 20040618
  2. CONTOMIN [Suspect]
     Dosage: 75 MG DAILY PO
     Route: 048
     Dates: start: 20040527, end: 20040618

REACTIONS (3)
  - JAUNDICE [None]
  - LIVER DISORDER [None]
  - PYREXIA [None]
